FAERS Safety Report 13086136 (Version 1)
Quarter: 2017Q1

REPORT INFORMATION
  Report Type: Spontaneous
  Country: US (occurrence: US)
  Receive Date: 20170104
  Receipt Date: 20170104
  Transmission Date: 20170428
  Serious: Yes (Hospitalization)
  Sender: FDA-Public Use
  Company Number: PHHY2016US179284

PATIENT
  Age: 45 Year
  Sex: Male

DRUGS (5)
  1. IMMUNE GLOBULIN NOS [Concomitant]
     Active Substance: IMMUNE GLOBULIN NOS
     Indication: MYELOPATHY
     Dosage: 2 G/KG, UNK
     Route: 042
  2. METHYLPREDNISOLONE. [Suspect]
     Active Substance: METHYLPREDNISOLONE
     Indication: HYPERSENSITIVITY
     Dosage: 1 G, UNK
     Route: 065
  3. DIFENHYDRAMIN [Concomitant]
     Indication: HYPERSENSITIVITY
     Route: 065
  4. PREDNISONE. [Suspect]
     Active Substance: PREDNISONE
     Indication: HYPERSENSITIVITY
     Dosage: TAPERING DOSE
     Route: 048
  5. EPINEPHRINE. [Concomitant]
     Active Substance: EPINEPHRINE
     Indication: HYPERSENSITIVITY
     Route: 065

REACTIONS (2)
  - Condition aggravated [Recovering/Resolving]
  - Arteriovenous fistula [Recovering/Resolving]
